FAERS Safety Report 7947067-1 (Version None)
Quarter: 2011Q4

REPORT INFORMATION
  Report Type: 
  Country: None (occurrence: None)
  Receive Date: 20111129
  Receipt Date: 20110829
  Transmission Date: 20120403
  Serious: No
  Sender: FDA-Public Use
  Company Number: US-ASTRAZENECA-2011SE51726

PATIENT
  Age: 65 Year
  Sex: Female

DRUGS (1)
  1. VIMOVO [Suspect]
     Indication: RHEUMATOID ARTHRITIS
     Route: 048

REACTIONS (3)
  - RHEUMATOID ARTHRITIS [None]
  - INCORRECT DOSE ADMINISTERED [None]
  - GAIT DISTURBANCE [None]
